FAERS Safety Report 22121484 (Version 3)
Quarter: 2023Q2

REPORT INFORMATION
  Report Type: Spontaneous
  Country: US (occurrence: US)
  Receive Date: 20230321
  Receipt Date: 20230413
  Transmission Date: 20230721
  Serious: Yes (Other)
  Sender: FDA-Public Use
  Company Number: US-PFIZER INC-202300117396

PATIENT
  Age: 60 Year
  Sex: Female
  Weight: 56.7 kg

DRUGS (3)
  1. PAXLOVID [Interacting]
     Active Substance: NIRMATRELVIR\RITONAVIR
     Indication: COVID-19 treatment
     Dosage: [PF-07321332 300 MG]/[RITONAVIR 100 MG]; 2X/DAY
     Route: 048
     Dates: start: 20230311, end: 20230315
  2. CANNABIDIOL [Interacting]
     Active Substance: CANNABIDIOL
     Dosage: UNK
     Dates: start: 20230314, end: 20230315
  3. HERBALS\TETRAHYDROCANNABINOL UNSPECIFIED [Interacting]
     Active Substance: HERBALS\TETRAHYDROCANNABINOL UNSPECIFIED
     Dosage: UNK
     Dates: start: 20230314, end: 20230315

REACTIONS (7)
  - Drug interaction [Unknown]
  - Near death experience [Unknown]
  - Nausea [Recovered/Resolved]
  - Dyspnoea [Recovered/Resolved]
  - Dizziness [Recovered/Resolved]
  - Cold sweat [Recovered/Resolved]
  - Hyperhidrosis [Recovered/Resolved]

NARRATIVE: CASE EVENT DATE: 20230315
